FAERS Safety Report 24211101 (Version 1)
Quarter: 2024Q3

REPORT INFORMATION
  Report Type: Report from Study
  Country: US (occurrence: US)
  Receive Date: 20240814
  Receipt Date: 20240814
  Transmission Date: 20241017
  Serious: Yes (Other)
  Sender: GILEAD
  Company Number: US-GILEAD-2024-0684132

PATIENT
  Age: 49 Year

DRUGS (1)
  1. AXICABTAGENE CILOLEUCEL [Suspect]
     Active Substance: AXICABTAGENE CILOLEUCEL
     Indication: B-cell lymphoma
     Dosage: UNKNOWN DOSAGE
     Route: 042

REACTIONS (2)
  - Pneumonia influenzal [Unknown]
  - Pneumonia bacterial [Unknown]
